FAERS Safety Report 6330440-5 (Version None)
Quarter: 2009Q3

REPORT INFORMATION
  Report Type: 
  Country: None (occurrence: None)
  Receive Date: 20090827
  Receipt Date: 20090818
  Transmission Date: 20100115
  Serious: Yes (Other)
  Sender: FDA-Public Use
  Company Number: US-BAYER-200926523NA

PATIENT
  Sex: Female

DRUGS (1)
  1. MIRENA [Suspect]
     Indication: DRUG USE FOR UNKNOWN INDICATION
     Dosage: CONTINUOUS
     Route: 015
     Dates: start: 20080101

REACTIONS (5)
  - CYSTITIS INTERSTITIAL [None]
  - DYSPAREUNIA [None]
  - FEELING COLD [None]
  - FEELING HOT [None]
  - OVARIAN CYST [None]
